FAERS Safety Report 4410782-0 (Version None)
Quarter: 2004Q3

REPORT INFORMATION
  Report Type: 
  Country: None (occurrence: None)
  Receive Date: 20040729
  Receipt Date: 20040503
  Transmission Date: 20050211
  Serious: Yes (Disabling)
  Sender: FDA-Public Use
  Company Number: US-MERCK-0405USA00144

PATIENT
  Age: 73 Year
  Sex: Male
  Weight: 114 kg

DRUGS (6)
  1. ASPIRIN [Concomitant]
     Route: 048
     Dates: start: 19840101
  2. PERSANTIN INJ [Concomitant]
     Route: 048
     Dates: start: 19840101
  3. ZETIA [Suspect]
     Indication: LOW DENSITY LIPOPROTEIN INCREASED
     Route: 048
     Dates: start: 20040113, end: 20040324
  4. COZAAR [Concomitant]
     Route: 048
     Dates: start: 20020101
  5. MEVACOR [Concomitant]
     Route: 048
     Dates: start: 19870101
  6. INDERAL [Concomitant]
     Route: 048
     Dates: start: 19840101

REACTIONS (4)
  - FATIGUE [None]
  - MUSCLE CONTRACTIONS INVOLUNTARY [None]
  - MYALGIA [None]
  - TREMOR [None]
